FAERS Safety Report 8665145 (Version 2)
Quarter: 2014Q4

REPORT INFORMATION
  Report Type: Spontaneous
  Country: US (occurrence: None)
  Receive Date: 20120628
  Receipt Date: 20141202
  Transmission Date: 20150529
  Serious: Yes (Hospitalization)
  Sender: FDA-Public Use
  Company Number: HA12-183-AE

PATIENT
  Age: 74 Year
  Sex: Female
  Weight: 101.6 kg

DRUGS (13)
  1. LORATADINE. [Concomitant]
     Active Substance: LORATADINE
  2. NAPROXEN. [Suspect]
     Active Substance: NAPROXEN
     Indication: OSTEOARTHRITIS
     Dosage: HIGH DOSE, 3X/DAY, ORAL
     Route: 048
     Dates: start: 20110902, end: 20120621
  3. CELECOXIB\IBUPROFEN\PLACEBO [Suspect]
     Active Substance: CELECOXIB\IBUPROFEN\PLACEBO
     Indication: OSTEOARTHRITIS
     Dosage: HIGH DOSE, 3X/DAY, ORAL
     Route: 048
     Dates: start: 20110902, end: 20120621
  4. ASPIRIN. [Concomitant]
     Active Substance: ASPIRIN
  5. LISINOPRIL. [Concomitant]
     Active Substance: LISINOPRIL
  6. MOMETASONE FUROATE. [Concomitant]
     Active Substance: MOMETASONE FUROATE
  7. CELECOXIB. [Concomitant]
     Active Substance: CELECOXIB
  8. NAPROXEN. [Suspect]
     Active Substance: NAPROXEN
     Indication: RHEUMATOID ARTHRITIS
     Dosage: HIGH DOSE, 3X/DAY, ORAL
     Route: 048
     Dates: start: 20110902, end: 20120621
  9. ESOMEPRAZOLE [Concomitant]
     Active Substance: ESOMEPRAZOLE
  10. MONTELUKAST SODIUM. [Concomitant]
     Active Substance: MONTELUKAST SODIUM
  11. GABAPENTIN. [Concomitant]
     Active Substance: GABAPENTIN
  12. CELECOXIB\IBUPROFEN\PLACEBO [Suspect]
     Active Substance: CELECOXIB\IBUPROFEN\PLACEBO
     Indication: RHEUMATOID ARTHRITIS
     Dosage: HIGH DOSE, 3X/DAY, ORAL
     Route: 048
     Dates: start: 20110902, end: 20120621
  13. TRAMADOL HYDROCHLORIDE. [Concomitant]
     Active Substance: TRAMADOL HYDROCHLORIDE

REACTIONS (26)
  - Gastroenteritis viral [None]
  - Shock [None]
  - Kidney transplant rejection [None]
  - Bacterial test positive [None]
  - Abdominal pain [None]
  - Bladder disorder [None]
  - Peritonitis [None]
  - Culture positive [None]
  - Diarrhoea [None]
  - Cystitis [None]
  - Eosinophil count increased [None]
  - Abscess intestinal [None]
  - Fungal test positive [None]
  - Haemodialysis [None]
  - Renal cyst [None]
  - Atrial fibrillation [None]
  - Monocyte count increased [None]
  - Hypotension [None]
  - Pulmonary embolism [None]
  - Tachycardia [None]
  - Septic shock [None]
  - Spleen disorder [None]
  - Red cell distribution width increased [None]
  - Nausea [None]
  - Vomiting [None]
  - Adrenal insufficiency [None]

NARRATIVE: CASE EVENT DATE: 20120502
